FAERS Safety Report 5580933-3 (Version None)
Quarter: 2007Q4

REPORT INFORMATION
  Report Type: 
  Country: None (occurrence: None)
  Receive Date: 20071227
  Receipt Date: 20071210
  Transmission Date: 20080405
  Serious: Yes (Death, Life-Threatening, Hospitalization)
  Sender: FDA-Public Use
  Company Number: CLOF-10738

PATIENT
  Age: 14 Year
  Sex: Female
  Weight: 25.855 kg

DRUGS (49)
  1. CLOFARABINE (CLOFARABINE) [Suspect]
     Indication: ACUTE LYMPHOCYTIC LEUKAEMIA
     Dosage: 63 MG, QD, INTRAVENOUS
     Route: 042
     Dates: start: 20071024, end: 20071028
  2. ETOPOSIDE [Suspect]
     Indication: ACUTE LYMPHOCYTIC LEUKAEMIA
     Dosage: 155 MG, QD, INTRAVENOUS
     Route: 042
     Dates: start: 20071024, end: 20071028
  3. CYCLOPHOSPHAMIDE [Suspect]
     Indication: ACUTE LYMPHOCYTIC LEUKAEMIA
     Dosage: 685 MG, QD, INTRAVENOUS
     Route: 042
     Dates: start: 20071024, end: 20071028
  4. ACETAMINOPHEN [Concomitant]
  5. ACYCLOVIR [Concomitant]
  6. ALLOPURINOL [Concomitant]
  7. ALUMINUM HYDROXIDE TAB [Concomitant]
  8. BISACODYL (BISACODYL) [Concomitant]
  9. DIPHENHYDRAMINE HCL [Concomitant]
  10. FLUCONAZOLE [Concomitant]
  11. HYDROCORTISONE (HYDROCORTISONE) [Concomitant]
  12. HYDROMORPHONE HCL [Concomitant]
  13. HYDROXYZINE [Concomitant]
  14. FUROSEMIDE [Concomitant]
  15. LORAZEPAM [Concomitant]
  16. MAGNESIUM AMINO ACIDS CHELATE [Concomitant]
  17. MAGNESIUM OXIDE (MAGNESIUM OXIDE) [Concomitant]
  18. MAGNESIUM SULFATE [Concomitant]
  19. MIRTAZAPINE [Concomitant]
  20. ONDANSETRON HCL [Concomitant]
  21. POTASSIUM CHLORIDE [Concomitant]
  22. RANITIDINE [Concomitant]
  23. SODIUM BICARBONATE IN PLASTIC CONTAINER [Concomitant]
  24. SUCRALFATE [Concomitant]
  25. BACTRIM [Concomitant]
  26. URSODIOL (URSODEOXYCHOLIC ACID) [Concomitant]
  27. VANCOMYCIN [Concomitant]
  28. MICAFUNGIN (MICAFUNGIN) [Concomitant]
  29. ZOSYN [Concomitant]
  30. PHYTONADIONE [Concomitant]
  31. NEUPOGEN [Concomitant]
  32. PANTOPRAZOLE SODIUM [Concomitant]
  33. ALBUMIN HUMAN 25% [Concomitant]
  34. GRANISETRON  HCL [Concomitant]
  35. SODIUM PHOSPHATE (SODIUM PHOSPHATE DIBASIC, SODIUM PHOSPHATE MONOBASIC [Concomitant]
  36. ACTIVASE [Concomitant]
  37. AMIKACIN [Concomitant]
  38. AMBISOME [Concomitant]
  39. CALCIUM CHLORIDE [Concomitant]
  40. CEFEPIME [Concomitant]
  41. FAT EMULSION (INTRAVENOUS) [Concomitant]
  42. MEROPENEM (MEROPENEM) [Concomitant]
  43. METRONIDAZOLE [Concomitant]
  44. MIDAZOLAM HCL [Concomitant]
  45. OLANZAPINE [Concomitant]
  46. DEFIBROTIDE (DEFIBROTIDE) [Concomitant]
  47. TOTAL PARENTAL NUTRITION [Concomitant]
  48. DOPAMINE HCL [Concomitant]
  49. EPINEPHRINE [Concomitant]

REACTIONS (40)
  - ACUTE GRAFT VERSUS HOST DISEASE IN INTESTINE [None]
  - ACUTE GRAFT VERSUS HOST DISEASE IN SKIN [None]
  - ACUTE LYMPHOCYTIC LEUKAEMIA RECURRENT [None]
  - ALOPECIA [None]
  - BACK PAIN [None]
  - BLOOD PHOSPHORUS DECREASED [None]
  - CAECITIS [None]
  - CANDIDIASIS [None]
  - CAPILLARY LEAK SYNDROME [None]
  - CATHETER SITE PAIN [None]
  - CHOLESTASIS [None]
  - CLOSTRIDIAL INFECTION [None]
  - CONFUSIONAL STATE [None]
  - CONTINUOUS HAEMODIAFILTRATION [None]
  - CORYNEBACTERIUM INFECTION [None]
  - CULTURE URINE POSITIVE [None]
  - FEBRILE NEUTROPENIA [None]
  - HALLUCINATION [None]
  - HYPOKALAEMIA [None]
  - HYPOTENSION [None]
  - LUNG CONSOLIDATION [None]
  - MUCOSAL INFLAMMATION [None]
  - NAUSEA [None]
  - NO THERAPEUTIC RESPONSE [None]
  - OESOPHAGEAL DILATATION [None]
  - OSTEOPENIA [None]
  - PANCREATITIS [None]
  - PERICARDIAL EFFUSION [None]
  - PLATELET COUNT DECREASED [None]
  - PLATELET COUNT INCREASED [None]
  - PLEURAL EFFUSION [None]
  - PRURITUS [None]
  - PULMONARY CONGESTION [None]
  - RENAL FAILURE ACUTE [None]
  - STREPTOCOCCAL INFECTION [None]
  - TACHYCARDIA [None]
  - TUMOUR LYSIS SYNDROME [None]
  - VENOOCCLUSIVE DISEASE [None]
  - VENOOCCLUSIVE LIVER DISEASE [None]
  - VOMITING [None]
